FAERS Safety Report 5660837-8 (Version None)
Quarter: 2008Q1

REPORT INFORMATION
  Report Type: 
  Country: None (occurrence: None)
  Receive Date: 20080311
  Receipt Date: 20080311
  Transmission Date: 20080703
  Serious: Yes (Other)
  Sender: FDA-Public Use
  Company Number: A0714505A

PATIENT
  Age: 53 Year
  Sex: Female
  Weight: 82.7 kg

DRUGS (3)
  1. ALLI [Suspect]
     Indication: WEIGHT LOSS DIET
     Route: 048
     Dates: start: 20080101, end: 20080310
  2. ZYRTEC [Concomitant]
  3. LEXAPRO [Concomitant]

REACTIONS (4)
  - ANAL HAEMORRHAGE [None]
  - HAEMATOCHEZIA [None]
  - NASOPHARYNGITIS [None]
  - RECTAL HAEMORRHAGE [None]
